FAERS Safety Report 15620653 (Version 1)
Quarter: 2018Q4

REPORT INFORMATION
  Report Type: Spontaneous
  Country: RU (occurrence: RU)
  Receive Date: 20181115
  Receipt Date: 20181115
  Transmission Date: 20190205
  Serious: Yes (Other)
  Sender: FDA-Public Use
  Company Number: RU-TEVA-2018-RU-974511

PATIENT
  Age: 63 Year
  Sex: Female

DRUGS (1)
  1. DIUVER [Suspect]
     Active Substance: TORSEMIDE
     Dosage: 1 TABLET IN THE MORNING

REACTIONS (3)
  - Gait inability [Unknown]
  - Drug ineffective [Unknown]
  - Product physical consistency issue [Unknown]
